FAERS Safety Report 4437552-1 (Version None)
Quarter: 2004Q3

REPORT INFORMATION
  Report Type: 
  Country: None (occurrence: None)
  Receive Date: 20040830
  Receipt Date: 20040830
  Transmission Date: 20050211
  Serious: Yes (Other)
  Sender: FDA-Public Use
  Company Number: None

PATIENT
  Sex: Female
  Weight: 89.8122 kg

DRUGS (1)
  1. PAXIL [Suspect]
     Dosage: 20 MG DAY ORAL
     Route: 048
     Dates: start: 20021210, end: 20040820

REACTIONS (3)
  - DRUG WITHDRAWAL SYNDROME [None]
  - TINNITUS [None]
  - TREATMENT NONCOMPLIANCE [None]
